FAERS Safety Report 20618651 (Version 2)
Quarter: 2022Q2

REPORT INFORMATION
  Report Type: Spontaneous
  Country: US (occurrence: US)
  Receive Date: 20220322
  Receipt Date: 20220427
  Transmission Date: 20220720
  Serious: Yes (Hospitalization)
  Sender: FDA-Public Use
  Company Number: US-NOVARTISPH-NVSC2022US061172

PATIENT
  Age: 16 Year
  Sex: Male

DRUGS (2)
  1. LIDOCAINE [Suspect]
     Active Substance: LIDOCAINE
     Indication: Echocardiogram
     Dosage: UNK
     Route: 065
  2. BENZOCAINE [Suspect]
     Active Substance: BENZOCAINE
     Indication: Echocardiogram
     Dosage: UNK
     Route: 061

REACTIONS (2)
  - Methaemoglobinaemia [Recovered/Resolved]
  - Product use in unapproved indication [Unknown]
